FAERS Safety Report 5980923-2 (Version None)
Quarter: 2008Q4

REPORT INFORMATION
  Report Type: 
  Country: None (occurrence: None)
  Receive Date: 20081205
  Receipt Date: 20080729
  Transmission Date: 20090506
  Serious: No
  Sender: FDA-Public Use
  Company Number: A0740074A

PATIENT
  Age: 23 Year
  Sex: Male

DRUGS (1)
  1. COMMIT [Suspect]

REACTIONS (1)
  - ORAL DISCOMFORT [None]
